FAERS Safety Report 17954812 (Version 5)
Quarter: 2021Q4

REPORT INFORMATION
  Report Type: Spontaneous
  Country: US (occurrence: US)
  Receive Date: 20200629
  Receipt Date: 20211208
  Transmission Date: 20220303
  Serious: Yes (Other)
  Sender: FDA-Public Use
  Company Number: US-GILEAD-2020-0476665

PATIENT
  Age: 46 Year
  Sex: Male
  Weight: 94.785 kg

DRUGS (20)
  1. ATRIPLA [Suspect]
     Active Substance: EFAVIRENZ\EMTRICITABINE\TENOFOVIR DISOPROXIL FUMARATE
     Indication: HIV infection
     Dosage: UNK
     Route: 048
     Dates: start: 2017, end: 2017
  2. COMPLERA [Suspect]
     Active Substance: EMTRICITABINE\RILPIVIRINE HYDROCHLORIDE\TENOFOVIR DISOPROXIL FUMARATE
     Indication: HIV infection
     Dosage: UNK
     Route: 048
     Dates: start: 2011, end: 20171027
  3. ODEFSEY [Concomitant]
     Active Substance: EMTRICITABINE\RILPIVIRINE HYDROCHLORIDE\TENOFOVIR ALAFENAMIDE FUMARATE
  4. ACETAMINOPHEN [Concomitant]
     Active Substance: ACETAMINOPHEN
  5. ACYCLOVIR [Concomitant]
     Active Substance: ACYCLOVIR
  6. ALENDRONATE [Concomitant]
     Active Substance: ALENDRONATE SODIUM
  7. ASPIRIN [Concomitant]
     Active Substance: ASPIRIN
  8. BACTRIM [Concomitant]
     Active Substance: SULFAMETHOXAZOLE\TRIMETHOPRIM
  9. DEXAMETHASONE [Concomitant]
     Active Substance: DEXAMETHASONE
  10. DILANTIN [Concomitant]
     Active Substance: PHENYTOIN
  11. FAMOTIDINE [Concomitant]
     Active Substance: FAMOTIDINE
  12. PANTOPRAZOLE [Concomitant]
     Active Substance: PANTOPRAZOLE
  13. PENICILLIN [Concomitant]
     Active Substance: PENICILLIN
  14. PREDNISONE [Concomitant]
     Active Substance: PREDNISONE
  15. RANITIDINE [Concomitant]
     Active Substance: RANITIDINE
  16. TRIAMCINOLONE [Concomitant]
     Active Substance: TRIAMCINOLONE
  17. WARFARIN [Concomitant]
     Active Substance: WARFARIN
  18. EDURANT [Concomitant]
     Active Substance: RILPIVIRINE HYDROCHLORIDE
  19. JULUCA [Concomitant]
     Active Substance: DOLUTEGRAVIR SODIUM\RILPIVIRINE HYDROCHLORIDE
  20. TIVICAY [Concomitant]
     Active Substance: DOLUTEGRAVIR SODIUM

REACTIONS (14)
  - Osteoporosis [Not Recovered/Not Resolved]
  - Fall [Unknown]
  - Lower limb fracture [Recovered/Resolved]
  - Jaw fracture [Recovered/Resolved]
  - Wrist fracture [Recovered/Resolved]
  - Wrist fracture [Recovered/Resolved]
  - Wrist fracture [Unknown]
  - Foot fracture [Recovered/Resolved]
  - Rib fracture [Unknown]
  - Osteopenia [Unknown]
  - Bone density decreased [Unknown]
  - Tooth loss [Unknown]
  - Anxiety [Not Recovered/Not Resolved]
  - Depression [Not Recovered/Not Resolved]

NARRATIVE: CASE EVENT DATE: 20130101
